FAERS Safety Report 7991788-1 (Version None)
Quarter: 2011Q4

REPORT INFORMATION
  Report Type: 
  Country: None (occurrence: None)
  Receive Date: 20111219
  Receipt Date: 20111214
  Transmission Date: 20120403
  Serious: Yes (Death)
  Sender: FDA-Public Use
  Company Number: US-CELGENEUS-163-21880-11060109

PATIENT
  Sex: Male
  Weight: 56.75 kg

DRUGS (18)
  1. AMIODARONE HCL [Concomitant]
     Route: 065
  2. REVLIMID [Suspect]
     Indication: MULTIPLE MYELOMA
     Dosage: 25 MILLIGRAM
     Route: 048
     Dates: start: 20110310
  3. FAMOTIDINE [Concomitant]
     Route: 065
  4. LOMOTIL [Concomitant]
     Route: 065
  5. LOVENOX [Concomitant]
     Route: 065
  6. MEGACE [Concomitant]
     Route: 065
  7. METFORMIN HCL [Concomitant]
     Route: 065
  8. VELCADE [Concomitant]
     Route: 065
  9. ATARAX [Concomitant]
     Route: 065
  10. HYDROCODONE [Concomitant]
     Route: 065
  11. LASIX [Concomitant]
     Route: 065
  12. METOPROLOL [Concomitant]
     Route: 065
  13. REGLAN [Concomitant]
     Route: 065
  14. DIGOXIN [Concomitant]
     Route: 065
  15. ZOMETA [Concomitant]
     Route: 065
  16. REVLIMID [Suspect]
     Route: 048
     Dates: start: 20110310
  17. DEXAMETHASONE [Concomitant]
     Route: 065
  18. ZOFRAN [Concomitant]
     Route: 065

REACTIONS (3)
  - DIARRHOEA [None]
  - MULTIPLE MYELOMA [None]
  - DECREASED APPETITE [None]
